FAERS Safety Report 14449805 (Version 2)
Quarter: 2018Q2

REPORT INFORMATION
  Report Type: Report from Study
  Country: TR (occurrence: TR)
  Receive Date: 20180128
  Receipt Date: 20180409
  Transmission Date: 20180711
  Serious: Yes (Hospitalization)
  Sender: FDA-Public Use
  Company Number: TR-ALEXION PHARMACEUTICALS INC.-A201800606

PATIENT
  Age: 64 Year
  Sex: Female
  Weight: 111 kg

DRUGS (43)
  1. ECULIZUMAB [Suspect]
     Active Substance: ECULIZUMAB
     Indication: NEUROMYELITIS OPTICA SPECTRUM DISORDER
     Dosage: 240 ML, UNK
     Route: 042
     Dates: start: 20160331, end: 20160331
  2. EUTHYROX [Concomitant]
     Active Substance: LEVOTHYROXINE SODIUM
     Indication: HYPOTHYROIDISM
     Dosage: 100 MG, QD
     Route: 048
     Dates: start: 20161104
  3. LYRICA [Concomitant]
     Active Substance: PREGABALIN
     Indication: NEUROMYELITIS OPTICA SPECTRUM DISORDER
     Dosage: 150 MG, TID
     Route: 048
     Dates: start: 20171031
  4. COUMADIN [Concomitant]
     Active Substance: WARFARIN SODIUM
     Dosage: 7.5 MG, QOD
     Route: 048
     Dates: start: 20171127, end: 20171207
  5. ECULIZUMAB [Suspect]
     Active Substance: ECULIZUMAB
     Dosage: 240 ML, UNK
     Route: 042
     Dates: start: 20180104
  6. PANTO                              /01263204/ [Concomitant]
     Indication: PROPHYLAXIS
     Dosage: 40 MG, BID
     Route: 048
     Dates: start: 20170102
  7. OTRIVINE [Concomitant]
     Active Substance: XYLOMETAZOLINE HYDROCHLORIDE
     Indication: SINUS OPERATION
     Dosage: 10 ML, PRN
     Route: 045
     Dates: start: 20171031
  8. COUMADIN [Concomitant]
     Active Substance: WARFARIN SODIUM
     Indication: ANTIPHOSPHOLIPID SYNDROME
     Dosage: 7.5 MG, QD
     Route: 048
     Dates: start: 20171110, end: 20171111
  9. COUMADIN [Concomitant]
     Active Substance: WARFARIN SODIUM
     Dosage: 7.5 MG, QOD
     Route: 048
     Dates: start: 20171209, end: 20171216
  10. COUMADIN [Concomitant]
     Active Substance: WARFARIN SODIUM
     Dosage: 5 MG, SINGLE
     Route: 048
     Dates: start: 20171210, end: 20171210
  11. NAPROSYN [Concomitant]
     Active Substance: NAPROXEN
     Indication: PAIN
     Dosage: 750 MG, SINGLE
     Route: 048
     Dates: start: 20171207, end: 20171207
  12. SPASMEX /00376202/ [Concomitant]
     Active Substance: TROSPIUM CHLORIDE
     Indication: NEUROMYELITIS OPTICA SPECTRUM DISORDER
     Dosage: 60 MG, BID
     Route: 048
     Dates: start: 20161103
  13. FORSTEO [Concomitant]
     Active Substance: TERIPARATIDE
     Indication: OSTEOPOROSIS
     Dosage: 0.25 MCG/MCL, QD
     Route: 058
     Dates: start: 20170210
  14. PREDNOL                            /00049601/ [Concomitant]
     Active Substance: METHYLPREDNISOLONE
     Dosage: 8 MG, QOD
     Route: 048
     Dates: start: 20170309
  15. COUMADIN [Concomitant]
     Active Substance: WARFARIN SODIUM
     Dosage: 7.5 MG, QOD
     Route: 048
     Dates: start: 20171218, end: 20171221
  16. ULCURAN [Concomitant]
     Indication: PROPHYLAXIS
     Dosage: 50 MG, SINGLE
     Route: 042
     Dates: start: 20180103, end: 20180103
  17. CALCIMAX D3                        /01606701/ [Concomitant]
     Indication: OSTEOPOROSIS
     Dosage: 1000 MG, QD
     Route: 048
     Dates: start: 20161219
  18. ECULIZUMAB [Suspect]
     Active Substance: ECULIZUMAB
     Dosage: 120 MG, UNK
     Route: 042
     Dates: start: 20180315
  19. PIYELOSEPTYL [Concomitant]
     Active Substance: NITROFURANTOIN
     Indication: PROPHYLAXIS URINARY TRACT INFECTION
     Dosage: 100 MG, TID
     Route: 048
     Dates: start: 20170215
  20. VOLTAREN [Concomitant]
     Active Substance: DICLOFENAC SODIUM
     Dosage: 75 MG, SINGLE
     Route: 048
     Dates: start: 20171123, end: 20171123
  21. PREDNOL                            /00049601/ [Concomitant]
     Active Substance: METHYLPREDNISOLONE
     Indication: PROPHYLAXIS
     Dosage: 1000 MG, QMONTH
     Route: 042
     Dates: start: 20170308
  22. PREDNOL                            /00049601/ [Concomitant]
     Active Substance: METHYLPREDNISOLONE
     Dosage: 16 MG, QOD
     Route: 048
     Dates: start: 20170310
  23. GLUCOSAMINE CHONDROITIN MSM [Concomitant]
     Indication: PROPHYLAXIS
     Dosage: 3000 MG, BID
     Route: 048
     Dates: start: 20170818
  24. COUMADIN [Concomitant]
     Active Substance: WARFARIN SODIUM
     Dosage: 7.5 MG, QD
     Route: 048
     Dates: start: 20171124, end: 20171125
  25. CELLCEPT [Concomitant]
     Active Substance: MYCOPHENOLATE MOFETIL\MYCOPHENOLATE MOFETIL HYDROCHLORIDE
     Indication: NEUROMYELITIS OPTICA SPECTRUM DISORDER
     Dosage: 1000 MG, BID
     Route: 048
     Dates: start: 20170317
  26. EXODERIL [Concomitant]
     Active Substance: NAFTIFINE HYDROCHLORIDE
     Indication: DERMATITIS
  27. COUMADIN [Concomitant]
     Active Substance: WARFARIN SODIUM
     Dosage: 10 MG, QOD
     Route: 048
     Dates: start: 20171114, end: 20171116
  28. COUMADIN [Concomitant]
     Active Substance: WARFARIN SODIUM
     Dosage: 7.5 MG, QOD
     Route: 048
     Dates: start: 20171123, end: 20171123
  29. COUMADIN [Concomitant]
     Active Substance: WARFARIN SODIUM
     Dosage: 32 MG, QOD
     Route: 048
     Dates: start: 20171219, end: 20171219
  30. KAPTOPRIL [Concomitant]
     Dosage: 25 MG, SINGLE
     Route: 060
     Dates: start: 20171221, end: 20171221
  31. TRILEPTAL [Concomitant]
     Active Substance: OXCARBAZEPINE
     Indication: SEIZURE
     Dosage: 150 MG, BID
     Route: 048
     Dates: start: 20170118
  32. VOLTAREN [Concomitant]
     Active Substance: DICLOFENAC SODIUM
     Indication: PAIN
     Dosage: 50 MG, PRN
     Route: 048
     Dates: start: 20170221
  33. EXODERIL [Concomitant]
     Active Substance: NAFTIFINE HYDROCHLORIDE
     Indication: TINEA PEDIS
     Dosage: UNK UNK, QD
     Route: 061
     Dates: start: 20170511
  34. COUMADIN [Concomitant]
     Active Substance: WARFARIN SODIUM
     Dosage: 10 MG, QOD
     Route: 048
     Dates: start: 20171126, end: 20171206
  35. KAPTOPRIL [Concomitant]
     Indication: HYPERTENSION
     Dosage: 25 MG, SINGLE
     Route: 060
     Dates: start: 20171219, end: 20171219
  36. BENEXOL B12                        /00176001/ [Concomitant]
     Indication: VITAMIN SUPPLEMENTATION
     Dosage: 1 TAB, QD
     Route: 048
     Dates: start: 2012
  37. CIPRALEX [Concomitant]
     Active Substance: ESCITALOPRAM OXALATE
     Indication: DEPRESSION
     Dosage: 10 MG, QD
     Route: 048
     Dates: start: 20170221
  38. COUMADIN [Concomitant]
     Active Substance: WARFARIN SODIUM
     Dosage: 7.5 MG, QOD
     Route: 048
     Dates: start: 20171113, end: 20171117
  39. COUMADIN [Concomitant]
     Active Substance: WARFARIN SODIUM
     Dosage: 10 MG, QOD
     Route: 048
     Dates: start: 20171208, end: 20171208
  40. AVIL                               /00085102/ [Concomitant]
     Indication: FLUSHING
     Dosage: 22.7 MG, PRN
     Route: 048
     Dates: start: 201707
  41. COUMADIN [Concomitant]
     Active Substance: WARFARIN SODIUM
     Dosage: 6.25 MG, QD
     Route: 048
     Dates: start: 20171112, end: 20171112
  42. COUMADIN [Concomitant]
     Active Substance: WARFARIN SODIUM
     Dosage: 7.5 MG, QOD
     Route: 048
     Dates: start: 20171118, end: 20171122
  43. COUMADIN [Concomitant]
     Active Substance: WARFARIN SODIUM
     Dosage: 10 MG, QOD
     Route: 048
     Dates: start: 20171119, end: 20171121

REACTIONS (1)
  - Neuromyelitis optica spectrum disorder [Recovered/Resolved with Sequelae]

NARRATIVE: CASE EVENT DATE: 20171211
